FAERS Safety Report 4936428-0 (Version None)
Quarter: 2006Q1

REPORT INFORMATION
  Report Type: 
  Country: None (occurrence: None)
  Receive Date: 20060307
  Receipt Date: 20060301
  Transmission Date: 20060701
  Serious: Yes (Hospitalization)
  Sender: FDA-Public Use
  Company Number: FR-JNJFOC-20040702399

PATIENT
  Age: 48 Year
  Sex: Female
  Weight: 62 kg

DRUGS (10)
  1. REMICADE [Suspect]
     Indication: RHEUMATOID ARTHRITIS
     Dosage: 3MG/KG, 4MG/KG
     Route: 042
  2. NOVATREX [Suspect]
     Indication: RHEUMATOID ARTHRITIS
     Route: 048
  3. CORTANCYL [Suspect]
     Indication: RHEUMATOID ARTHRITIS
     Route: 048
  4. NAPROSYN [Suspect]
     Indication: RHEUMATOID ARTHRITIS
     Route: 048
  5. SPECIAFOLDINE [Concomitant]
     Route: 048
  6. PROPOFOL [Concomitant]
     Route: 048
  7. PROPOFOL [Concomitant]
     Route: 048
  8. PROPOFOL [Concomitant]
     Route: 048
  9. PROPOFOL [Concomitant]
     Route: 048
  10. PROPOFOL [Concomitant]
     Route: 048

REACTIONS (4)
  - DRUG INEFFECTIVE [None]
  - DRUG INTERACTION [None]
  - LOBAR PNEUMONIA [None]
  - TUBERCULOSIS [None]
